FAERS Safety Report 5034185-3 (Version None)
Quarter: 2006Q2

REPORT INFORMATION
  Report Type: 
  Country: None (occurrence: None)
  Receive Date: 20060626
  Receipt Date: 20060621
  Transmission Date: 20061013
  Serious: Yes (Disabling)
  Sender: FDA-Public Use
  Company Number: US-GLAXOSMITHKLINE-A0609863A

PATIENT
  Age: 51 Year
  Sex: Female

DRUGS (3)
  1. LAMICTAL [Suspect]
     Indication: BIPOLAR DISORDER
     Route: 048
     Dates: start: 20050420
  2. NORTRIPTYLINE HCL [Suspect]
     Dosage: 150MG PER DAY
  3. ABILIFY [Concomitant]

REACTIONS (3)
  - ALOPECIA [None]
  - DRUG INTERACTION [None]
  - DRUG TOXICITY [None]
